FAERS Safety Report 5431158-3 (Version None)
Quarter: 2007Q3

REPORT INFORMATION
  Report Type: 
  Country: None (occurrence: None)
  Receive Date: 20070830
  Receipt Date: 20070309
  Transmission Date: 20080115
  Serious: No
  Sender: FDA-Public Use
  Company Number: A0642600A

PATIENT
  Sex: Male

DRUGS (12)
  1. WELLBUTRIN XL [Suspect]
     Indication: DEPRESSION
     Dosage: 300MG PER DAY
     Route: 048
  2. NEURONTIN [Concomitant]
  3. BENICAR [Concomitant]
  4. NORVASC [Concomitant]
  5. PROTONIX [Concomitant]
  6. SINGULAIR [Concomitant]
  7. ALLEGRA [Concomitant]
  8. LEVITRA [Concomitant]
  9. ASPIRIN [Concomitant]
  10. VITAMIN E [Concomitant]
  11. VITAMIN B-12 [Concomitant]
  12. SELENIUM SULFIDE [Concomitant]

REACTIONS (3)
  - INSOMNIA [None]
  - LIBIDO INCREASED [None]
  - THERAPEUTIC RESPONSE UNEXPECTED [None]
